FAERS Safety Report 4889426-X (Version None)
Quarter: 2006Q1

REPORT INFORMATION
  Report Type: 
  Country: None (occurrence: None)
  Receive Date: 20060120
  Receipt Date: 20060120
  Transmission Date: 20060701
  Serious: No
  Sender: FDA-Public Use
  Company Number: None

PATIENT

DRUGS (1)
  1. DOCUSATE SODIUM W/ SENNA [Suspect]

REACTIONS (1)
  - MEDICATION ERROR [None]
